FAERS Safety Report 15107052 (Version 2)
Quarter: 2018Q3

REPORT INFORMATION
  Report Type: Spontaneous
  Country: US (occurrence: US)
  Receive Date: 20180704
  Receipt Date: 20180802
  Transmission Date: 20181010
  Serious: No
  Sender: FDA-Public Use
  Company Number: US-PFIZER INC-2018268949

PATIENT
  Age: 38 Year
  Sex: Female

DRUGS (1)
  1. METHOTREXATE SODIUM. [Suspect]
     Active Substance: METHOTREXATE SODIUM
     Indication: RHEUMATOID ARTHRITIS
     Dosage: 25 MG, UNK
     Route: 058

REACTIONS (4)
  - Gastrointestinal disorder [Recovered/Resolved]
  - Pharyngitis streptococcal [Unknown]
  - Therapy non-responder [Unknown]
  - Onychoclasis [Unknown]

NARRATIVE: CASE EVENT DATE: 201711
